FAERS Safety Report 8370186-5 (Version None)
Quarter: 2012Q2

REPORT INFORMATION
  Report Type: 
  Country: None (occurrence: None)
  Receive Date: 20120518
  Receipt Date: 20120511
  Transmission Date: 20120825
  Serious: Yes (Other)
  Sender: FDA-Public Use
  Company Number: GB-B.I. PHARMACEUTICALS,INC./RIDGEFIELD-2012-UK-00639UK

PATIENT
  Age: 36 Year
  Sex: Female

DRUGS (6)
  1. KALETRA [Suspect]
  2. ABACAVIR SULFATE/LAMIVUDINE [Suspect]
     Dosage: 1 RT
  3. REYATAZ [Suspect]
  4. NEVIRAPINE [Suspect]
  5. FOLIC ACID [Concomitant]
     Dosage: 400 MG
  6. PRILOSEC [Suspect]

REACTIONS (2)
  - PREGNANCY [None]
  - VIRAL LOAD INCREASED [None]
